FAERS Safety Report 8921102 (Version 1)
Quarter: 2012Q4

REPORT INFORMATION
  Report Type: 
  Country: US (occurrence: US)
  Receive Date: 20121122
  Receipt Date: 20121122
  Transmission Date: 20130627
  Serious: Yes (Hospitalization)
  Sender: FDA-Public Use
  Company Number: US-AMGEN-USASP2012074570

PATIENT
  Age: 82 Year

DRUGS (1)
  1. PROCRIT [Suspect]
     Indication: PRODUCT USED FOR UNKNOWN INDICATION
     Dosage: 40000 unit, q3wk

REACTIONS (2)
  - Abdominal pain [Not Recovered/Not Resolved]
  - Blood test abnormal [Not Recovered/Not Resolved]
